FAERS Safety Report 5112721-6 (Version None)
Quarter: 2006Q3

REPORT INFORMATION
  Report Type: 
  Country: None (occurrence: None)
  Receive Date: 20060922
  Receipt Date: 20060914
  Transmission Date: 20061208
  Serious: Yes (Death, Life-Threatening)
  Sender: FDA-Public Use
  Company Number: JP-JPN-A19995314

PATIENT
  Age: 7 Year
  Sex: Female
  Weight: 15 kg

DRUGS (12)
  1. FLOLAN [Suspect]
     Indication: PULMONARY HYPERTENSION
     Route: 042
     Dates: start: 19990423, end: 19990423
  2. METILDIGOXIN [Concomitant]
     Indication: PULMONARY HYPERTENSION
     Route: 048
     Dates: start: 19981101, end: 19990422
  3. FUROSEMIDE [Concomitant]
     Indication: PULMONARY HYPERTENSION
     Route: 048
     Dates: start: 19981101, end: 19990422
  4. ASPIRIN [Concomitant]
     Indication: PULMONARY HYPERTENSION
     Route: 048
     Dates: start: 19981101, end: 19990422
  5. CETRAXATE HYDROCHLORIDE [Concomitant]
     Indication: PULMONARY HYPERTENSION
     Route: 048
     Dates: start: 19981101, end: 19990422
  6. CAPTOPRIL [Concomitant]
     Indication: PULMONARY HYPERTENSION
     Route: 048
     Dates: start: 19990302, end: 19990422
  7. NIFEDIPINE [Concomitant]
     Indication: PULMONARY HYPERTENSION
     Route: 048
     Dates: start: 19990307, end: 19990422
  8. BERAPROST SODIUM [Concomitant]
     Indication: PULMONARY HYPERTENSION
     Route: 048
     Dates: start: 19990326, end: 19990422
  9. MORPHINE [Concomitant]
     Route: 042
     Dates: start: 19990423, end: 19990423
  10. DIAZEPAM [Concomitant]
     Route: 042
     Dates: start: 19990423, end: 19990423
  11. HYDROXYZINE PAMOATE [Concomitant]
     Route: 042
     Dates: start: 19990423, end: 19990423
  12. LIDOCAINE [Concomitant]
     Route: 058
     Dates: start: 19990423, end: 19990423

REACTIONS (4)
  - BRADYCARDIA [None]
  - C-REACTIVE PROTEIN INCREASED [None]
  - HYPOXIA [None]
  - PYREXIA [None]
